FAERS Safety Report 7694254-6 (Version None)
Quarter: 2011Q3

REPORT INFORMATION
  Report Type: 
  Country: None (occurrence: None)
  Receive Date: 20110819
  Receipt Date: 20110815
  Transmission Date: 20111222
  Serious: Yes (Other)
  Sender: FDA-Public Use
  Company Number: US-GLAXOSMITHKLINE-A0941105A

PATIENT
  Age: 68 Year
  Sex: Male

DRUGS (5)
  1. METOPROLOL SUCCINATE [Concomitant]
  2. TAMSULOSIN HCL [Concomitant]
  3. LEVOTHYROXINE SODIUM [Concomitant]
  4. COMBIVENT [Concomitant]
  5. ADVAIR DISKUS 100/50 [Suspect]
     Indication: CHRONIC OBSTRUCTIVE PULMONARY DISEASE
     Dosage: 1PUFF TWICE PER DAY
     Route: 055
     Dates: start: 20090801

REACTIONS (2)
  - RETINAL TEAR [None]
  - VISUAL ACUITY REDUCED [None]
